FAERS Safety Report 8784445 (Version 1)
Quarter: 2012Q4

REPORT INFORMATION
  Report Type: 
  Country: JP (occurrence: JP)
  Receive Date: 20120913
  Receipt Date: 20120913
  Transmission Date: 20130627
  Serious: Yes (Other)
  Sender: FDA-Public Use
  Company Number: JP-PFIZER INC-2012222956

PATIENT
  Sex: Male

DRUGS (2)
  1. CELECOX [Suspect]
     Dosage: 200mg, Daily
     Route: 048
  2. MUCOSTA [Concomitant]
     Dosage: UNK

REACTIONS (2)
  - Mental impairment [Unknown]
  - Disturbance in attention [Unknown]
